FAERS Safety Report 15885397 (Version 1)
Quarter: 2019Q1

REPORT INFORMATION
  Report Type: Spontaneous
  Country: US (occurrence: US)
  Receive Date: 20190108
  Receipt Date: 20190108
  Transmission Date: 20190417
  Serious: No
  Sender: FDA-Public Use
  Company Number: None

PATIENT
  Age: 36 Year
  Sex: Female

DRUGS (1)
  1. HUMIRA [Suspect]
     Active Substance: ADALIMUMAB
     Dosage: OTHER DOSE:40/0.4 MG/ML; UNDER THE SKIN?
     Route: 058

REACTIONS (3)
  - Pain [None]
  - Loss of personal independence in daily activities [None]
  - Condition aggravated [None]

NARRATIVE: CASE EVENT DATE: 20181224
